FAERS Safety Report 6399943-1 (Version None)
Quarter: 2009Q4

REPORT INFORMATION
  Report Type: 
  Country: None (occurrence: None)
  Receive Date: 20091008
  Receipt Date: 20091008
  Transmission Date: 20100525
  Serious: Yes (Other)
  Sender: FDA-Public Use
  Company Number: None

PATIENT
  Sex: Female
  Weight: 66.2252 kg

DRUGS (1)
  1. CLINDAMYCIN HYDROCHLORIDE [Suspect]
     Indication: TOOTH INFECTION
     Dosage: 1 CAPSULE 4 TIMES PER DAY PO
     Route: 048
     Dates: start: 20090722, end: 20090730

REACTIONS (1)
  - CLOSTRIDIAL INFECTION [None]
